FAERS Safety Report 18258936 (Version 1)
Quarter: 2020Q3

REPORT INFORMATION
  Report Type: Report from Study
  Country: US (occurrence: US)
  Receive Date: 20200911
  Receipt Date: 20200911
  Transmission Date: 20201103
  Serious: Yes (Hospitalization)
  Sender: FDA-Public Use
  Company Number: US-JNJFOC-A-US2020-203137

PATIENT
  Age: 48 Year
  Sex: Male
  Weight: 87.17 kg

DRUGS (15)
  1. VELETRI [Suspect]
     Active Substance: EPOPROSTENOL
     Route: 042
  2. TORSEMIDE. [Concomitant]
     Active Substance: TORSEMIDE
  3. CHLORHEXIDINE [Suspect]
     Active Substance: CHLORHEXIDINE
     Indication: PRODUCT USED FOR UNKNOWN INDICATION
     Route: 065
  4. VELETRI [Suspect]
     Active Substance: EPOPROSTENOL
     Indication: PULMONARY ARTERIAL HYPERTENSION
     Dosage: 6 NG/KG, PER MIN
     Route: 042
  5. LASIX [Concomitant]
     Active Substance: FUROSEMIDE
     Dosage: 40 MG, BID
     Route: 042
  6. POTASSIUM CHLORIDE. [Concomitant]
     Active Substance: POTASSIUM CHLORIDE
  7. OPSUMIT [Suspect]
     Active Substance: MACITENTAN
     Indication: PULMONARY ARTERIAL HYPERTENSION
     Dosage: 10 MG, QD
     Route: 048
     Dates: start: 20200303
  8. SILDENAFIL CITRATE. [Concomitant]
     Active Substance: SILDENAFIL CITRATE
     Dosage: 20 MG, TID
  9. MAGNESIUM SULFATE. [Concomitant]
     Active Substance: MAGNESIUM SULFATE
     Dosage: 2 G
     Route: 042
  10. ALDOSTERONE [Concomitant]
     Active Substance: ALDOSTERONE
  11. EPLERENONE. [Concomitant]
     Active Substance: EPLERENONE
  12. VELETRI [Suspect]
     Active Substance: EPOPROSTENOL
     Dosage: 7 NG/KG, PER MIN
     Route: 042
  13. MIDODRINE [Concomitant]
     Active Substance: MIDODRINE
     Dosage: 15 MG, TID
  14. ELIQUIS [Concomitant]
     Active Substance: APIXABAN
  15. VELETRI [Suspect]
     Active Substance: EPOPROSTENOL
     Dosage: 5 NG/KG, PER MIN
     Route: 042

REACTIONS (11)
  - Vascular device infection [Unknown]
  - Catheter management [Unknown]
  - Asthenia [Recovered/Resolved]
  - Catheter site pruritus [Unknown]
  - Chills [Recovered/Resolved]
  - Catheter site irritation [Not Recovered/Not Resolved]
  - Staphylococcal sepsis [Recovered/Resolved]
  - Drug hypersensitivity [Unknown]
  - Pyrexia [Recovered/Resolved]
  - Catheter site erythema [Unknown]
  - Catheter site discharge [Not Recovered/Not Resolved]

NARRATIVE: CASE EVENT DATE: 20200612
